FAERS Safety Report 25225512 (Version 2)
Quarter: 2025Q2

REPORT INFORMATION
  Report Type: Spontaneous
  Country: JP (occurrence: JP)
  Receive Date: 20250422
  Receipt Date: 20250610
  Transmission Date: 20250716
  Serious: Yes (Hospitalization, Other)
  Sender: PFIZER
  Company Number: JP-PFIZER INC-PV202400159025

PATIENT
  Age: 72 Year
  Sex: Male
  Weight: 56.3 kg

DRUGS (17)
  1. LORBRENA [Suspect]
     Active Substance: LORLATINIB
     Indication: Lung adenocarcinoma
     Dosage: 100 MG, 1X/DAY (EVERY DAY)
     Route: 048
     Dates: start: 20241202, end: 20241205
  2. LORBRENA [Suspect]
     Active Substance: LORLATINIB
     Route: 048
     Dates: start: 20241212, end: 20241224
  3. LORBRENA [Suspect]
     Active Substance: LORLATINIB
     Dates: start: 20241225
  4. ALLOID G [Concomitant]
     Active Substance: SODIUM ALGINATE
  5. ASPIRIN [Concomitant]
     Active Substance: ASPIRIN
  6. UNSPECIFIED INGREDIENT [Concomitant]
     Active Substance: UNSPECIFIED INGREDIENT
  7. SODIUM FERROUS CITRATE [Concomitant]
     Active Substance: SODIUM FERROUS CITRATE
  8. FOLIC ACID [Concomitant]
     Active Substance: FOLIC ACID
  9. GALANTAMINE [Concomitant]
     Active Substance: GALANTAMINE
  10. MAGNESIUM OXIDE [Concomitant]
     Active Substance: MAGNESIUM OXIDE
  11. MOVICOL [Concomitant]
     Active Substance: POLYETHYLENE GLYCOL 3350\POTASSIUM CHLORIDE\SODIUM BICARBONATE\SODIUM CHLORIDE
  12. NEXIUM [Concomitant]
     Active Substance: ESOMEPRAZOLE MAGNESIUM
  13. OLMESARTAN [Concomitant]
     Active Substance: OLMESARTAN
  14. SERMION [NICERGOLINE] [Concomitant]
  15. SILODOSIN [Concomitant]
     Active Substance: SILODOSIN
  16. SYMMETREL [Concomitant]
     Active Substance: AMANTADINE HYDROCHLORIDE
  17. LEVOTHYROXINE [Concomitant]
     Active Substance: LEVOTHYROXINE

REACTIONS (4)
  - Delirium [Recovered/Resolved]
  - Oesophageal stenosis [Recovered/Resolved]
  - Fall [Unknown]
  - Off label use [Unknown]

NARRATIVE: CASE EVENT DATE: 20241205
